FAERS Safety Report 7369815-4 (Version None)
Quarter: 2011Q1

REPORT INFORMATION
  Report Type: 
  Country: None (occurrence: None)
  Receive Date: 20110318
  Receipt Date: 20110318
  Transmission Date: 20110831
  Serious: Yes (Hospitalization)
  Sender: FDA-Public Use
  Company Number: None

PATIENT
  Age: 20 Year
  Sex: Male
  Weight: 65 kg

DRUGS (1)
  1. PHENYTOIN [Suspect]
     Indication: CONVULSION
     Dosage: 100 MG TID PO
     Route: 048
     Dates: start: 20110315, end: 20110317

REACTIONS (6)
  - NYSTAGMUS [None]
  - NAUSEA [None]
  - LOSS OF CONSCIOUSNESS [None]
  - HEADACHE [None]
  - DIZZINESS [None]
  - VOMITING [None]
